FAERS Safety Report 12500262 (Version 2)
Quarter: 2016Q2

REPORT INFORMATION
  Report Type: Spontaneous
  Country: DE (occurrence: DE)
  Receive Date: 20160627
  Receipt Date: 20160628
  Transmission Date: 20160815
  Serious: Yes (Other)
  Sender: FDA-Public Use
  Company Number: DE-PFIZER INC-2016308769

PATIENT
  Age: 35 Year
  Sex: Female
  Weight: 73 kg

DRUGS (5)
  1. L-THYROX [Concomitant]
     Active Substance: LEVOTHYROXINE SODIUM
     Indication: HYPOTHYROIDISM
     Dosage: 100 UG, 1X/DAY (0. - 40. GESTATIONAL WEEK)
     Route: 048
     Dates: start: 20150527
  2. VENLAFAXINE HCL [Suspect]
     Active Substance: VENLAFAXINE HYDROCHLORIDE
     Indication: ANXIETY DISORDER
     Dosage: 150 MG, 1X/DAY (0. - 40. GESTATIONAL WEEK)
     Route: 048
     Dates: start: 20150527
  3. FEMIBION [Concomitant]
     Active Substance: VITAMINS
     Indication: PROPHYLAXIS OF NEURAL TUBE DEFECT
     Dosage: UNK (0.5. - 40. GESTATIONAL WEEK)
     Route: 048
     Dates: start: 20150601
  4. SEROQUEL [Suspect]
     Active Substance: QUETIAPINE FUMARATE
     Indication: DEPRESSION
     Dosage: 150 MG, 1X/DAY (0. - 40. GESTATIONAL WEEK)
     Route: 048
     Dates: start: 20150527
  5. XANAFLU [Concomitant]
     Active Substance: INFLUENZA VIRUS VACCINE
     Indication: IMMUNISATION
     Dosage: UNK (19.6. - 19.6. GESTATIONAL WEEK)
     Route: 030
     Dates: start: 20151013, end: 20151013

REACTIONS (1)
  - Gestational diabetes [Recovered/Resolved]
